FAERS Safety Report 23798257 (Version 1)
Quarter: 2024Q2

REPORT INFORMATION
  Report Type: Spontaneous
  Country: US (occurrence: US)
  Receive Date: 20240430
  Receipt Date: 20240430
  Transmission Date: 20240716
  Serious: Yes (Other)
  Sender: FDA-Public Use
  Company Number: US-AUROBINDO-AUR-APL-2024-019026

PATIENT
  Age: 38 Year
  Sex: Male

DRUGS (10)
  1. DILTIAZEM [Suspect]
     Active Substance: DILTIAZEM
     Indication: Tachyarrhythmia
     Dosage: 90 MILLIGRAM, DAILY
     Route: 065
  2. DILTIAZEM [Suspect]
     Active Substance: DILTIAZEM
     Indication: Cardiac failure
  3. CHOLESTYRAMINE [Suspect]
     Active Substance: CHOLESTYRAMINE
     Indication: Tachyarrhythmia
     Dosage: 2 GRAM, TWO TIMES A DAY
     Route: 065
  4. CHOLESTYRAMINE [Suspect]
     Active Substance: CHOLESTYRAMINE
     Indication: Cardiac failure
  5. PROPRANOLOL [Suspect]
     Active Substance: PROPRANOLOL HYDROCHLORIDE
     Indication: Tachyarrhythmia
     Dosage: 40 MILLIGRAM, 3 TIMES A DAY
     Route: 065
  6. PROPRANOLOL [Suspect]
     Active Substance: PROPRANOLOL HYDROCHLORIDE
     Indication: Cardiac failure
     Dosage: INCREASED
     Route: 065
  7. METHIMAZOLE [Suspect]
     Active Substance: METHIMAZOLE
     Indication: Cardiac failure
     Dosage: 30 MILLIGRAM, TWO TIMES A DAY
     Route: 065
  8. METHIMAZOLE [Suspect]
     Active Substance: METHIMAZOLE
     Indication: Tachyarrhythmia
  9. POTASSIUM IODIDE [Suspect]
     Active Substance: POTASSIUM IODIDE
     Indication: Tachyarrhythmia
     Dosage: 3 DROP, 3 TIMES A DAY
     Route: 065
  10. POTASSIUM IODIDE [Suspect]
     Active Substance: POTASSIUM IODIDE
     Indication: Cardiac failure

REACTIONS (1)
  - Drug ineffective [Unknown]
